FAERS Safety Report 14670202 (Version 1)
Quarter: 2018Q1

REPORT INFORMATION
  Report Type: Report from Study
  Country: US (occurrence: US)
  Receive Date: 20180322
  Receipt Date: 20180322
  Transmission Date: 20180509
  Serious: Yes (Hospitalization, Other)
  Sender: FDA-Public Use
  Company Number: US-TAKEDA-2018TUS006774

PATIENT
  Age: 45 Year
  Sex: Male

DRUGS (1)
  1. PONATINIB [Suspect]
     Active Substance: PONATINIB
     Indication: ACUTE LYMPHOCYTIC LEUKAEMIA
     Dosage: 15 MG, QD
     Route: 048
     Dates: start: 20150422

REACTIONS (12)
  - Tumour lysis syndrome [Unknown]
  - Obesity [Unknown]
  - Malnutrition [Unknown]
  - Neuropathy peripheral [Unknown]
  - Hypomagnesaemia [Unknown]
  - Hypophosphataemia [Unknown]
  - Pain [Unknown]
  - Acute lymphocytic leukaemia [Unknown]
  - Oedema peripheral [Unknown]
  - Clostridium difficile infection [Unknown]
  - Neutropenia [Unknown]
  - Fatigue [Not Recovered/Not Resolved]

NARRATIVE: CASE EVENT DATE: 201801
